FAERS Safety Report 24254384 (Version 2)
Quarter: 2024Q3

REPORT INFORMATION
  Report Type: Spontaneous
  Country: IT (occurrence: IT)
  Receive Date: 20240827
  Receipt Date: 20240909
  Transmission Date: 20241017
  Serious: Yes (Other)
  Sender: TEVA
  Company Number: IT-TEVA-VS-3236055

PATIENT
  Age: 25 Year
  Sex: Male

DRUGS (1)
  1. ISOTRETINOIN [Suspect]
     Active Substance: ISOTRETINOIN
     Indication: Dermatitis acneiform
     Route: 065

REACTIONS (1)
  - Staphylococcal skin infection [Recovered/Resolved]
